FAERS Safety Report 6697800-4 (Version None)
Quarter: 2010Q2

REPORT INFORMATION
  Report Type: 
  Country: None (occurrence: None)
  Receive Date: 20100423
  Receipt Date: 20100408
  Transmission Date: 20101027
  Serious: Yes (Hospitalization)
  Sender: FDA-Public Use
  Company Number: 2010001297

PATIENT
  Age: 70 Year
  Sex: Male

DRUGS (6)
  1. ERLOTINIB (ERLOTINIB) (TABLET) (ERLOTINIB) [Suspect]
     Indication: NON-SMALL CELL LUNG CANCER
     Dosage: ORAL
     Route: 048
     Dates: start: 20100311
  2. GEMCITABINE [Suspect]
     Indication: NON-SMALL CELL LUNG CANCER
     Dosage: (1800 MG),INTRAVENOUS
     Route: 042
     Dates: start: 20100225
  3. CARBOPLATIN [Suspect]
     Indication: NON-SMALL CELL LUNG CANCER
     Dosage: (421 MG),INTRAVENOUS
     Route: 042
     Dates: start: 20100225
  4. TRAMADOL HCL [Concomitant]
  5. ACETYLCYSTEINE [Concomitant]
  6. APPEBON [Concomitant]

REACTIONS (1)
  - ANAEMIA [None]
